FAERS Safety Report 9136753 (Version 1)
Quarter: 2013Q1

REPORT INFORMATION
  Report Type: Spontaneous
  Country: US (occurrence: US)
  Receive Date: 20130304
  Receipt Date: 20130304
  Transmission Date: 20140127
  Serious: No
  Sender: FDA-Public Use
  Company Number: US-ABBOTT-12P-163-0931294-00

PATIENT
  Sex: Male
  Weight: 97.61 kg

DRUGS (5)
  1. ANDROGEL 1% [Suspect]
     Indication: BLOOD TESTOSTERONE DECREASED
     Route: 061
     Dates: start: 2008, end: 201203
  2. ANDROGEL 1% [Suspect]
     Route: 061
     Dates: start: 201203
  3. SIMVASTATIN [Concomitant]
     Indication: BLOOD CHOLESTEROL INCREASED
  4. UNKNOWN OVER THE COUNTER VITAMINS [Concomitant]
     Indication: VITAMIN SUPPLEMENTATION
  5. NEW SKIN HIGH POTENCY ANTIOXIDENT VITAMINS [Concomitant]
     Indication: VITAMIN SUPPLEMENTATION

REACTIONS (5)
  - Therapeutic response unexpected [Not Recovered/Not Resolved]
  - Acne [Recovering/Resolving]
  - Libido increased [Not Recovered/Not Resolved]
  - Personality change [Not Recovered/Not Resolved]
  - Energy increased [Not Recovered/Not Resolved]
